FAERS Safety Report 10381230 (Version 2)
Quarter: 2015Q3

REPORT INFORMATION
  Report Type: Spontaneous
  Country: US (occurrence: US)
  Receive Date: 20140813
  Receipt Date: 20150717
  Transmission Date: 20151125
  Serious: Yes (Death, Life-Threatening, Hospitalization, Disabling, Other)
  Sender: FDA-Public Use
  Company Number: US-009507513-1408USA007201

PATIENT
  Sex: Female
  Weight: 87.53 kg

DRUGS (1)
  1. JANUMET [Suspect]
     Active Substance: METFORMIN HYDROCHLORIDE\SITAGLIPTIN PHOSPHATE
     Indication: TYPE 2 DIABETES MELLITUS
     Dosage: 50-1000 BID
     Route: 048
     Dates: start: 20090527, end: 20121110

REACTIONS (26)
  - Metastases to liver [Unknown]
  - Death [Fatal]
  - Diabetes mellitus inadequate control [Unknown]
  - Asthma [Unknown]
  - Bile duct stent insertion [Unknown]
  - Gastric banding [Unknown]
  - Pancreatic carcinoma metastatic [Unknown]
  - Bile duct stent insertion [Unknown]
  - Skin hyperpigmentation [Unknown]
  - Oedema peripheral [Recovering/Resolving]
  - Hypercholesterolaemia [Unknown]
  - Dyspnoea [Unknown]
  - Medical device complication [Unknown]
  - Cholangitis [Unknown]
  - Streptococcal bacteraemia [Unknown]
  - Hypothyroidism [Unknown]
  - Constipation [Unknown]
  - Bile duct stent insertion [Unknown]
  - Pancreatitis chronic [Not Recovered/Not Resolved]
  - Adverse drug reaction [Unknown]
  - Device occlusion [Unknown]
  - Anaemia [Unknown]
  - Nerve block [Unknown]
  - Rash [Recovering/Resolving]
  - Hyperglycaemia [Unknown]
  - Cardiac murmur [Unknown]

NARRATIVE: CASE EVENT DATE: 20120828
